FAERS Safety Report 14822616 (Version 1)
Quarter: 2018Q2

REPORT INFORMATION
  Report Type: Spontaneous
  Country: JP (occurrence: JP)
  Receive Date: 20180427
  Receipt Date: 20180427
  Transmission Date: 20180711
  Serious: Yes (Hospitalization)
  Sender: FDA-Public Use
  Company Number: JP-NAPPMUNDI-GBR-2018-0054104

PATIENT
  Age: 69 Year
  Sex: Male

DRUGS (1)
  1. NORSPAN [Suspect]
     Active Substance: BUPRENORPHINE
     Indication: BACK PAIN
     Dosage: 20 MCG, Q1H (TWO 10 MCG/H PATCHES)
     Route: 062

REACTIONS (2)
  - Incorrect drug administration duration [Unknown]
  - Brain neoplasm [Unknown]
